APPROVED DRUG PRODUCT: FLUTICASONE PROPIONATE AND SALMETEROL XINAFOATE
Active Ingredient: FLUTICASONE PROPIONATE; SALMETEROL XINAFOATE
Strength: 0.5MG/INH;EQ 0.05MG BASE/INH
Dosage Form/Route: POWDER;INHALATION
Application: A203433 | Product #003 | TE Code: AB
Applicant: HIKMA PHARMACEUTICALS USA INC
Approved: Dec 19, 2023 | RLD: No | RS: No | Type: RX